FAERS Safety Report 9195060 (Version 1)
Quarter: 2013Q1

REPORT INFORMATION
  Report Type: Spontaneous
  Country: US (occurrence: US)
  Receive Date: 20130328
  Receipt Date: 20130328
  Transmission Date: 20140127
  Serious: No
  Sender: FDA-Public Use
  Company Number: US-ALLERGAN-1212873US

PATIENT
  Sex: Female

DRUGS (3)
  1. LATISSE 0.03% [Suspect]
     Indication: GROWTH OF EYELASHES
     Dosage: 1 GTT, QHS
     Route: 061
     Dates: start: 2012, end: 2012
  2. MICARDIS [Concomitant]
     Indication: HYPERTENSION
     Dosage: UNK
     Route: 048
  3. NORVASC                            /00972401/ [Concomitant]
     Indication: HYPERTENSION
     Dosage: UNK
     Route: 048

REACTIONS (5)
  - Wrong technique in drug usage process [Unknown]
  - Incorrect dose administered [Unknown]
  - Erythema [Recovered/Resolved]
  - Erythema of eyelid [Recovered/Resolved]
  - Vision blurred [Unknown]
